FAERS Safety Report 17309206 (Version 1)
Quarter: 2020Q1

REPORT INFORMATION
  Report Type: Spontaneous
  Country: GB (occurrence: GB)
  Receive Date: 20200123
  Receipt Date: 20200123
  Transmission Date: 20200409
  Serious: Yes (Other)
  Sender: FDA-Public Use
  Company Number: GB-MYLANLABS-2020M1007265

PATIENT
  Age: 22 Year
  Sex: Male

DRUGS (2)
  1. PARACETAMOL [Concomitant]
     Active Substance: ACETAMINOPHEN
     Dosage: AS NEEDED
     Route: 048
  2. METFORMIN [Suspect]
     Active Substance: METFORMIN HYDROCHLORIDE
     Indication: DIABETES MELLITUS
     Dosage: 500 ONCE A DAY THEN UP TO TWICE A DAY.
     Route: 048
     Dates: start: 20100618, end: 20100803

REACTIONS (3)
  - Intentional self-injury [Recovering/Resolving]
  - Mood swings [Recovering/Resolving]
  - Aggression [Recovering/Resolving]
